FAERS Safety Report 5332893-8 (Version None)
Quarter: 2007Q2

REPORT INFORMATION
  Report Type: 
  Country: None (occurrence: None)
  Receive Date: 20070521
  Receipt Date: 20070504
  Transmission Date: 20071010
  Serious: Yes (Other)
  Sender: FDA-Public Use
  Company Number: 2007RR-07452

PATIENT
  Age: 63 Year
  Sex: Female

DRUGS (2)
  1. FENOFIBRATE [Suspect]
     Dosage: 200 MG, QD
  2. SIMVASTATIN [Suspect]
     Dosage: 20 MG, QD

REACTIONS (6)
  - ADRENAL INSUFFICIENCY [None]
  - AUTOIMMUNE THYROIDITIS [None]
  - BLOOD PRESSURE ABNORMAL [None]
  - HYPOTHYROIDISM [None]
  - RENAL FAILURE ACUTE [None]
  - RHABDOMYOLYSIS [None]
